FAERS Safety Report 9453658 (Version 6)
Quarter: 2014Q2

REPORT INFORMATION
  Report Type: Spontaneous
  Country: US (occurrence: US)
  Receive Date: 20130812
  Receipt Date: 20140417
  Transmission Date: 20141212
  Serious: Yes (Hospitalization, Other)
  Sender: FDA-Public Use
  Company Number: US-009507513-1308USA003239

PATIENT
  Sex: Female

DRUGS (4)
  1. FOSAMAX [Suspect]
     Indication: OSTEOPOROSIS
     Dosage: 70 MG, QW
     Route: 048
     Dates: start: 200610, end: 2008
  2. ALENDRONATE SODIUM [Suspect]
     Indication: OSTEOPOROSIS
     Dosage: 70 MG, QW
     Route: 048
     Dates: start: 2008, end: 2010
  3. ONE-A-DAY ESSENTIAL VITAMINS [Concomitant]
     Dosage: 1 DF, QD
     Dates: start: 2000
  4. HORMONES (UNSPECIFIED) [Concomitant]
     Dosage: UNK
     Dates: start: 1990, end: 2009

REACTIONS (14)
  - Intramedullary rod insertion [Unknown]
  - Postoperative respiratory failure [Recovered/Resolved]
  - Femur fracture [Recovered/Resolved]
  - Medical device pain [Not Recovered/Not Resolved]
  - Bone disorder [Unknown]
  - Breast mass [Unknown]
  - Biopsy breast [Unknown]
  - Lipoma excision [Unknown]
  - Lipoma [Unknown]
  - Hypertension [Unknown]
  - Femoroacetabular impingement [Unknown]
  - Sleep apnoea syndrome [Unknown]
  - Pneumonia [Unknown]
  - Bone pain [Unknown]
